FAERS Safety Report 9571138 (Version 1)
Quarter: 2013Q4

REPORT INFORMATION
  Report Type: Spontaneous
  Country: FR (occurrence: FR)
  Receive Date: 20131001
  Receipt Date: 20131001
  Transmission Date: 20140711
  Serious: Yes (Hospitalization)
  Sender: FDA-Public Use
  Company Number: PHHY2013FR108267

PATIENT
  Age: 80 Year
  Sex: Male

DRUGS (11)
  1. COMTAN [Suspect]
     Indication: PARKINSON^S DISEASE
     Dosage: 200 MG, QID
     Route: 048
     Dates: start: 20121129, end: 20121208
  2. KARDEGIC [Concomitant]
     Dosage: UNK UKN, UNK
  3. FLECAINE [Concomitant]
     Dosage: UNK UKN, UNK
  4. PRAVASTATIN [Concomitant]
     Dosage: UNK UKN, UNK
  5. LERCANIDIPINE [Concomitant]
     Dosage: UNK UKN, UNK
  6. HEMIGOXINE [Concomitant]
     Dosage: UNK UKN, UNK
  7. ESOMEPRAZOLE [Concomitant]
     Dosage: UNK UKN, UNK
  8. NOCTAMIDE [Concomitant]
     Dosage: UNK UKN, UNK
  9. MODOPAR [Concomitant]
     Dosage: UNK UKN, UNK
  10. TRIVASTAL [Concomitant]
     Dosage: UNK UKN, UNK
  11. MOTILIUM//DOMPERIDONE [Concomitant]
     Dosage: UNK UKN, UNK

REACTIONS (4)
  - Craniocerebral injury [Recovered/Resolved]
  - Balance disorder [Recovered/Resolved]
  - Fall [Recovered/Resolved]
  - Hallucination [Recovered/Resolved]
